FAERS Safety Report 9390742 (Version 1)
Quarter: 2013Q3

REPORT INFORMATION
  Report Type: Spontaneous
  Country: US (occurrence: US)
  Receive Date: 20130709
  Receipt Date: 20130709
  Transmission Date: 20140515
  Serious: No
  Sender: FDA-Public Use
  Company Number: 2009BI014295

PATIENT
  Age: 47 Year
  Sex: Male

DRUGS (3)
  1. TYSABRI [Suspect]
     Indication: MULTIPLE SCLEROSIS
     Route: 042
     Dates: start: 20090429
  2. ANTIDEPRESSANT (NOS) [Concomitant]
     Indication: MOOD SWINGS
  3. ANTIDEPRESSANT (NOS) [Concomitant]
     Indication: ANGER

REACTIONS (4)
  - Burning sensation [Unknown]
  - Dyspepsia [Unknown]
  - Mood swings [Unknown]
  - Anger [Unknown]
